FAERS Safety Report 20199736 (Version 2)
Quarter: 2024Q1

REPORT INFORMATION
  Report Type: Spontaneous
  Country: US (occurrence: US)
  Receive Date: 20211217
  Receipt Date: 20240201
  Transmission Date: 20240410
  Serious: No
  Sender: FDA-Public Use
  Company Number: US-NOVEN PHARMACEUTICALS, INC.-2021US000278

PATIENT
  Sex: Female

DRUGS (9)
  1. ESTRADIOL [Suspect]
     Active Substance: ESTRADIOL
     Indication: Menopausal symptoms
     Dosage: 0.1MG, TWICE WEEKLY
     Route: 062
  2. ESTRADIOL [Suspect]
     Active Substance: ESTRADIOL
     Dosage: 0.1MG+0.05MG, 2/WEEK
     Route: 062
  3. ESTRADIOL [Suspect]
     Active Substance: ESTRADIOL
     Dosage: 0.1MG, TWICE WEEKLY
     Route: 062
     Dates: start: 20210103
  4. ESTRADIOL [Suspect]
     Active Substance: ESTRADIOL
     Dosage: 0.1MG+0.05MG, 2/WEEK
     Route: 062
     Dates: start: 2018
  5. ZOMIG [Concomitant]
     Active Substance: ZOLMITRIPTAN
     Indication: Migraine
     Dosage: UNKNOWN
     Route: 065
  6. NASCOBAL [Concomitant]
     Active Substance: CYANOCOBALAMIN
     Indication: Vitamin B12
     Dosage: UNKNOWN
     Route: 045
  7. VITAMIN D [Concomitant]
     Active Substance: VITAMIN D NOS
     Indication: Product used for unknown indication
     Dosage: 50,000/WEEKLY
     Route: 065
  8. FIBER [Concomitant]
     Indication: Product used for unknown indication
     Dosage: 2PILLS/DAY
     Route: 048
  9. AJOVY [Concomitant]
     Active Substance: FREMANEZUMAB-VFRM
     Indication: Migraine prophylaxis
     Dosage: UNKNOWN
     Route: 065

REACTIONS (14)
  - Application site inflammation [Not Recovered/Not Resolved]
  - Application site pain [Not Recovered/Not Resolved]
  - Application site pruritus [Not Recovered/Not Resolved]
  - Feeling hot [Unknown]
  - Abdominal distension [Unknown]
  - Headache [Unknown]
  - Abdominal discomfort [Unknown]
  - Constipation [Unknown]
  - Application site erythema [Not Recovered/Not Resolved]
  - Application site irritation [Not Recovered/Not Resolved]
  - Overdose [Not Recovered/Not Resolved]
  - Device issue [Not Recovered/Not Resolved]
  - Insomnia [Unknown]
  - Off label use [Not Recovered/Not Resolved]

NARRATIVE: CASE EVENT DATE: 20180101
